FAERS Safety Report 23905583 (Version 1)
Quarter: 2024Q2

REPORT INFORMATION
  Report Type: Spontaneous
  Country: CN (occurrence: CN)
  Receive Date: 20240527
  Receipt Date: 20240527
  Transmission Date: 20240716
  Serious: Yes (Other)
  Sender: FDA-Public Use
  Company Number: CN-PFIZER INC-PV202400067956

PATIENT
  Age: 62 Year
  Sex: Male
  Weight: 55 kg

DRUGS (5)
  1. EPIRUBICIN HYDROCHLORIDE [Suspect]
     Active Substance: EPIRUBICIN HYDROCHLORIDE
     Indication: Hepatic cancer
     Dosage: 30 MG, 1X/DAY
     Route: 025
     Dates: start: 20240514, end: 20240514
  2. OXALIPLATIN [Suspect]
     Active Substance: OXALIPLATIN
     Indication: Hepatic cancer
     Dosage: 150 MG, 1X/DAY
     Route: 025
     Dates: start: 20240514, end: 20240514
  3. LIPIODOL [Concomitant]
     Active Substance: ETHIODIZED OIL
     Indication: Interventional procedure
     Dosage: 10 ML, 1X/DAY
     Route: 025
     Dates: start: 20240518, end: 20240518
  4. DEXTROSE [Concomitant]
     Active Substance: DEXTROSE\DEXTROSE MONOHYDRATE
     Indication: Interventional procedure
     Dosage: 30 ML, 1X/DAY
     Route: 025
     Dates: start: 20240518, end: 20240518
  5. MAGNESIUM ISOGLYCYRRHIZINATE [Concomitant]
     Active Substance: MAGNESIUM ISOGLYCYRRHIZINATE
     Indication: Symptomatic treatment
     Dosage: UNK

REACTIONS (3)
  - Hepatic function abnormal [Recovered/Resolved]
  - Drug-induced liver injury [Recovered/Resolved]
  - Off label use [Unknown]

NARRATIVE: CASE EVENT DATE: 20240514
